FAERS Safety Report 4994549-0 (Version None)
Quarter: 2006Q2

REPORT INFORMATION
  Report Type: 
  Country: None (occurrence: None)
  Receive Date: 20060505
  Receipt Date: 20050919
  Transmission Date: 20061013
  Serious: Yes (Other)
  Sender: FDA-Public Use
  Company Number: US-MERCK-0509USA02837

PATIENT
  Sex: Female
  Weight: 73 kg

DRUGS (8)
  1. VIOXX [Suspect]
     Indication: RHEUMATOID ARTHRITIS
     Route: 048
     Dates: start: 20010101, end: 20040101
  2. VIOXX [Suspect]
     Indication: ARTHRALGIA
     Route: 048
     Dates: start: 20010101, end: 20040101
  3. BEXTRA [Suspect]
     Route: 065
  4. CELEBREX [Suspect]
     Route: 065
  5. PREMARIN [Concomitant]
     Route: 065
  6. HYZAAR [Concomitant]
     Route: 065
  7. [THERAPY UNSPECIFIED] [Concomitant]
     Indication: THYROID DISORDER
     Route: 065
  8. PROZAC [Concomitant]
     Route: 065

REACTIONS (15)
  - ARTHROPATHY [None]
  - CARDIAC FAILURE [None]
  - CEREBROVASCULAR ACCIDENT [None]
  - CHEST PAIN [None]
  - GASTRIC DISORDER [None]
  - HEPATOCELLULAR DAMAGE [None]
  - LUNG DISORDER [None]
  - MYOCARDIAL INFARCTION [None]
  - PALPITATIONS [None]
  - RENAL DISORDER [None]
  - RENAL INJURY [None]
  - SKIN INJURY [None]
  - STEVENS-JOHNSON SYNDROME [None]
  - THROMBOSIS [None]
  - ULCER [None]
